FAERS Safety Report 24979547 (Version 8)
Quarter: 2025Q4

REPORT INFORMATION
  Report Type: Report from Study
  Country: CA (occurrence: CA)
  Receive Date: 20250218
  Receipt Date: 20251113
  Transmission Date: 20260117
  Serious: Yes (Hospitalization, Other)
  Sender: SAMSUNG BIOEPIS
  Company Number: CA-SAMSUNG BIOEPIS-SB-2025-05523

PATIENT
  Age: 71 Year
  Sex: Male

DRUGS (2)
  1. HADLIMA [Suspect]
     Active Substance: ADALIMUMAB-BWWD
     Indication: Rheumatoid arthritis
     Dosage: 40 MG/0.4 ML; 40 MG/0.8 ML;
     Dates: start: 20220109
  2. HADLIMA [Suspect]
     Active Substance: ADALIMUMAB-BWWD
     Dates: start: 20220909

REACTIONS (11)
  - Cystitis [Unknown]
  - Urosepsis [Unknown]
  - Delirium [Unknown]
  - Urinary tract infection [Not Recovered/Not Resolved]
  - Pseudomonas infection [Recovered/Resolved]
  - Back pain [Not Recovered/Not Resolved]
  - Arthralgia [Not Recovered/Not Resolved]
  - Dementia [Unknown]
  - Cellulitis [Unknown]
  - Sepsis [Unknown]
  - Cognitive disorder [Unknown]

NARRATIVE: CASE EVENT DATE: 20241201
